FAERS Safety Report 11738691 (Version 1)
Quarter: 2015Q4

REPORT INFORMATION
  Report Type: Report from Study
  Country: CA (occurrence: CA)
  Receive Date: 20151113
  Receipt Date: 20151113
  Transmission Date: 20160304
  Serious: Yes (Other)
  Sender: FDA-Public Use
  Company Number: CA-ABBVIE-13P-028-1092954-00

PATIENT
  Sex: Female
  Weight: 58.11 kg

DRUGS (5)
  1. HUMIRA [Suspect]
     Active Substance: ADALIMUMAB
     Route: 058
     Dates: end: 2015
  2. HUMIRA [Suspect]
     Active Substance: ADALIMUMAB
     Indication: CROHN^S DISEASE
     Route: 058
     Dates: start: 20080313
  3. HUMIRA [Suspect]
     Active Substance: ADALIMUMAB
     Route: 058
     Dates: start: 201509
  4. 6-MERCAPTOPURINE [Concomitant]
     Active Substance: MERCAPTOPURINE
     Indication: PRODUCT USED FOR UNKNOWN INDICATION
  5. PREDNISONE. [Concomitant]
     Active Substance: PREDNISONE
     Indication: PRODUCT USED FOR UNKNOWN INDICATION

REACTIONS (6)
  - Skin bacterial infection [Not Recovered/Not Resolved]
  - Skin ulcer [Not Recovered/Not Resolved]
  - Rectal discharge [Not Recovered/Not Resolved]
  - Anal abscess [Unknown]
  - Crohn^s disease [Not Recovered/Not Resolved]
  - Anal fistula [Unknown]

NARRATIVE: CASE EVENT DATE: 2012
